FAERS Safety Report 21116425 (Version 1)
Quarter: 2022Q3

REPORT INFORMATION
  Report Type: Spontaneous
  Country: US (occurrence: US)
  Receive Date: 20220722
  Receipt Date: 20220722
  Transmission Date: 20221027
  Serious: Yes (Other)
  Sender: FDA-Public Use
  Company Number: US-JNJFOC-20220725667

PATIENT
  Age: 56 Year
  Sex: Female

DRUGS (5)
  1. UPTRAVI [Suspect]
     Active Substance: SELEXIPAG
     Indication: Product used for unknown indication
     Route: 065
  2. OFEV [Suspect]
     Active Substance: NINTEDANIB
     Indication: Idiopathic pulmonary fibrosis
     Route: 048
     Dates: start: 20200519
  3. OFEV [Suspect]
     Active Substance: NINTEDANIB
     Indication: Postpartum haemorrhage
  4. TREPROSTINIL [Suspect]
     Active Substance: TREPROSTINIL
     Indication: Product used for unknown indication
     Route: 065
  5. TYVASO [Concomitant]
     Active Substance: TREPROSTINIL
     Indication: Product used for unknown indication
     Dates: end: 202107

REACTIONS (36)
  - Scleroderma [Unknown]
  - Cardiac failure [Unknown]
  - Autoimmune disorder [Unknown]
  - Aortic valve replacement [Unknown]
  - Hip arthroplasty [Unknown]
  - Arthralgia [Unknown]
  - Dysstasia [Unknown]
  - Diarrhoea [Unknown]
  - Arthralgia [Unknown]
  - Headache [Recovered/Resolved]
  - Nausea [Unknown]
  - Myalgia [Unknown]
  - Gait inability [Unknown]
  - Abdominal pain upper [Unknown]
  - Anal incontinence [Unknown]
  - Decreased appetite [Unknown]
  - Gastrooesophageal reflux disease [Unknown]
  - Abdominal discomfort [Unknown]
  - Pain in extremity [Unknown]
  - Taste disorder [Unknown]
  - Palpitations [Unknown]
  - Oxygen consumption increased [Not Recovered/Not Resolved]
  - Peripheral swelling [Not Recovered/Not Resolved]
  - Fluid retention [Unknown]
  - Epistaxis [Unknown]
  - Tremor [Unknown]
  - Chest discomfort [Unknown]
  - Malaise [Unknown]
  - Food poisoning [Unknown]
  - Movement disorder [Unknown]
  - Pain in jaw [Unknown]
  - Anxiety [Unknown]
  - Depression [Unknown]
  - Feeling of despair [Unknown]
  - Restlessness [Unknown]
  - Sensitivity to weather change [Unknown]

NARRATIVE: CASE EVENT DATE: 20220201
